FAERS Safety Report 9625059 (Version 1)
Quarter: 2013Q4

REPORT INFORMATION
  Report Type: Spontaneous
  Country: US (occurrence: None)
  Receive Date: 20131010
  Receipt Date: 20131010
  Transmission Date: 20140711
  Serious: Yes (Hospitalization)
  Sender: FDA-Public Use
  Company Number: 1547804

PATIENT
  Age: 4 Year
  Sex: Male

DRUGS (12)
  1. METHOTREXATE INJECTION (METHOTREXATE) [Suspect]
     Indication: ACUTE LYMPHOCYTIC LEUKAEMIA
     Route: 037
     Dates: start: 20121031
  2. DASATINIB [Suspect]
     Indication: ACUTE LYMPHOCYTIC LEUKAEMIA
     Route: 048
     Dates: start: 20121029, end: 20121030
  3. CYCLOPHOSPHAMIDE [Suspect]
     Indication: ACUTE LYMPHOCYTIC LEUKAEMIA
     Dosage: 1000 MG/M2 ON DAY 1 AND 28 (1 HOUR)
     Route: 042
     Dates: start: 20121029
  4. CYTARABINE [Suspect]
     Indication: ACUTE LYMPHOCYTIC LEUKAEMIA
     Dosage: 75 MG/M2 DAY, INTRAVENOUS
     Route: 042
     Dates: start: 20121031
  5. MERCAPTOPURINE [Suspect]
     Indication: ACUTE LYMPHOCYTIC LEUKAEMIA
     Route: 048
     Dates: start: 20121029, end: 20121030
  6. CHLORHEXIDINE [Concomitant]
  7. LACTULOSE [Concomitant]
  8. MACROGOL [Concomitant]
  9. SULFATRIM [Concomitant]
  10. ONDANSETRON [Concomitant]
  11. HEPARIN [Concomitant]
  12. SODIUM CHLORIDE [Concomitant]

REACTIONS (4)
  - Febrile neutropenia [None]
  - Pyrexia [None]
  - Chills [None]
  - Haematotoxicity [None]
